FAERS Safety Report 13054115 (Version 1)
Quarter: 2016Q4

REPORT INFORMATION
  Report Type: Spontaneous
  Country: US (occurrence: US)
  Receive Date: 20161222
  Receipt Date: 20161222
  Transmission Date: 20170207
  Serious: Yes (Hospitalization)
  Sender: FDA-Public Use
  Company Number: None

PATIENT
  Age: 59 Year
  Sex: Female
  Weight: 90.2 kg

DRUGS (1)
  1. ERBITUX [Suspect]
     Active Substance: CETUXIMAB
     Dates: end: 20130415

REACTIONS (8)
  - Vomiting [None]
  - Dry mouth [None]
  - Weight decreased [None]
  - Dysphagia [None]
  - Ageusia [None]
  - Nausea [None]
  - Mucosal inflammation [None]
  - Decreased appetite [None]

NARRATIVE: CASE EVENT DATE: 20130523
